FAERS Safety Report 6409634-6 (Version None)
Quarter: 2009Q4

REPORT INFORMATION
  Report Type: 
  Country: None (occurrence: None)
  Receive Date: 20091019
  Receipt Date: 20091019
  Transmission Date: 20100525
  Serious: No
  Sender: FDA-Public Use
  Company Number: None

PATIENT
  Age: 52 Year
  Sex: Male

DRUGS (1)
  1. IMIPENEM AND CILASTATIN SODIUM [Suspect]
     Dates: start: 20050205, end: 20050212

REACTIONS (15)
  - ALCOHOL USE [None]
  - ARTHRALGIA [None]
  - ASTHENIA [None]
  - BACTERIAL TEST POSITIVE [None]
  - BLOOD ALKALINE PHOSPHATASE INCREASED [None]
  - BLOOD PRESSURE INCREASED [None]
  - CHEST PAIN [None]
  - EOSINOPHILIA [None]
  - ESCHERICHIA INFECTION [None]
  - FATIGUE [None]
  - GAMMA-GLUTAMYLTRANSFERASE INCREASED [None]
  - LIVER INJURY [None]
  - MYALGIA [None]
  - PANCREATITIS CHRONIC [None]
  - PRURITUS [None]
